FAERS Safety Report 10271485 (Version 2)
Quarter: 2014Q3

REPORT INFORMATION
  Report Type: Spontaneous
  Country: US (occurrence: US)
  Receive Date: 20140701
  Receipt Date: 20140815
  Transmission Date: 20150326
  Serious: Yes (Hospitalization)
  Sender: FDA-Public Use
  Company Number: US-DENDREON CORPORATION-2014PROUSA03824

PATIENT
  Age: 69 Year
  Sex: Male
  Weight: 93.61 kg

DRUGS (2)
  1. PROVENGE [Suspect]
     Active Substance: SIPULEUCEL-T
     Indication: PROSTATE CANCER METASTATIC
     Dosage: 250 ML, SINGLE
     Route: 042
     Dates: start: 20140609, end: 20140609
  2. PROVENGE [Suspect]
     Active Substance: SIPULEUCEL-T
     Dosage: 250 ML, SINGLE
     Route: 042
     Dates: start: 20140616, end: 20140616

REACTIONS (4)
  - Myocardial infarction [Unknown]
  - Renal failure [Unknown]
  - Cardiac failure [Unknown]
  - Device related infection [Unknown]

NARRATIVE: CASE EVENT DATE: 20140617
